FAERS Safety Report 18212172 (Version 4)
Quarter: 2020Q3

REPORT INFORMATION
  Report Type: Spontaneous
  Country: CA (occurrence: CA)
  Receive Date: 20200831
  Receipt Date: 20200916
  Transmission Date: 20201103
  Serious: Yes (Other)
  Sender: FDA-Public Use
  Company Number: CA-PFIZER INC-2020329407

PATIENT
  Age: 81 Year
  Sex: Female
  Weight: 55 kg

DRUGS (5)
  1. LIDOCAINE HCL [Suspect]
     Active Substance: LIDOCAINE HYDROCHLORIDE
     Indication: LOCAL ANAESTHESIA
     Dosage: UNK, 4ML OF SOLUTION, 2.4 PERCENT
  2. BUPIVACAINE HCL [Suspect]
     Active Substance: BUPIVACAINE HYDROCHLORIDE
     Indication: LOCAL ANAESTHESIA
     Dosage: UNK, 4ML OF SOLUTION, 0.15 PERCENT
  3. EPINEPHRINE. [Suspect]
     Active Substance: EPINEPHRINE
     Indication: LOCAL ANAESTHESIA
     Dosage: UNK, 1:200000
  4. HYALURONIDASE [Suspect]
     Active Substance: HYALURONIDASE
     Indication: LOCAL ANAESTHESIA
     Dosage: UNK, 4 ML OF 20 UNITS/ML
  5. EPINEPHRINE/LIDOCAINE HYDROCHLORIDE [Suspect]
     Active Substance: EPINEPHRINE\LIDOCAINE HYDROCHLORIDE
     Indication: LOCAL ANAESTHESIA
     Dosage: 8 ML

REACTIONS (3)
  - Apnoea [Recovered/Resolved]
  - Somnolence [Unknown]
  - Loss of consciousness [Unknown]
